FAERS Safety Report 7653304-3 (Version None)
Quarter: 2011Q3

REPORT INFORMATION
  Report Type: 
  Country: None (occurrence: None)
  Receive Date: 20110803
  Receipt Date: 20110725
  Transmission Date: 20111222
  Serious: Yes (Hospitalization)
  Sender: FDA-Public Use
  Company Number: US-ASTRAZENECA-2011SE44420

PATIENT
  Age: 8 Year

DRUGS (2)
  1. QUETIAPINE [Suspect]
     Route: 048
  2. CARBAMAZEPINE [Suspect]
     Route: 048

REACTIONS (4)
  - LETHARGY [None]
  - VOMITING [None]
  - INCORRECT DOSE ADMINISTERED [None]
  - DEPRESSED LEVEL OF CONSCIOUSNESS [None]
